FAERS Safety Report 4823408-9 (Version None)
Quarter: 2005Q4

REPORT INFORMATION
  Report Type: 
  Country: None (occurrence: None)
  Receive Date: 20051107
  Receipt Date: 20051025
  Transmission Date: 20060501
  Serious: Yes (Hospitalization)
  Sender: FDA-Public Use
  Company Number: EM2005-0504

PATIENT
  Age: 68 Year
  Sex: Male

DRUGS (5)
  1. PROLEUKIN [Suspect]
     Indication: RENAL CELL CARCINOMA STAGE UNSPECIFIED
     Dosage: 36 MIU, SUBCUTAN.
     Route: 058
     Dates: start: 20050905, end: 20050928
  2. ROFERON-A [Suspect]
     Indication: RENAL CELL CARCINOMA STAGE UNSPECIFIED
     Dosage: 9 MIU
     Dates: end: 20050926
  3. PARACETAMOL        (PARACETAMOL) [Concomitant]
  4. NORALGIN [Concomitant]
  5. PASPERTIN (METCLOPRAMIDE HYDROCHLORIDE) [Concomitant]

REACTIONS (13)
  - APATHY [None]
  - BENIGN PROSTATIC HYPERPLASIA [None]
  - DIARRHOEA [None]
  - GENERAL PHYSICAL HEALTH DETERIORATION [None]
  - HEPATIC STEATOSIS [None]
  - HEPATOSPLENOMEGALY [None]
  - HYPERKALAEMIA [None]
  - HYPONATRAEMIA [None]
  - NAUSEA [None]
  - ORAL INTAKE REDUCED [None]
  - RENAL FAILURE [None]
  - THYROID GLAND SCAN ABNORMAL [None]
  - VOMITING [None]
